FAERS Safety Report 19990792 (Version 3)
Quarter: 2022Q2

REPORT INFORMATION
  Report Type: Report from Study
  Country: BG (occurrence: BG)
  Receive Date: 20211025
  Receipt Date: 20220527
  Transmission Date: 20220721
  Serious: Yes (Hospitalization, Other)
  Sender: FDA-Public Use
  Company Number: BG-MERCK HEALTHCARE KGAA-9274208

PATIENT
  Age: 66 Year
  Sex: Male

DRUGS (4)
  1. CETUXIMAB [Suspect]
     Active Substance: CETUXIMAB
     Indication: Squamous cell carcinoma of head and neck
     Dosage: 400 MG/M2, SINGLE
     Route: 042
     Dates: start: 20211012, end: 20211012
  2. CETUXIMAB [Suspect]
     Active Substance: CETUXIMAB
     Dosage: 250 MG/M2, WEEKLY (1/W)
     Route: 042
     Dates: start: 20211012, end: 20211012
  3. WHOLE BLOOD [Concomitant]
     Active Substance: WHOLE BLOOD
     Indication: Anaemia
     Dosage: 305 MG, PRN
     Route: 042
     Dates: start: 20211009, end: 20211009
  4. WHOLE BLOOD [Concomitant]
     Active Substance: WHOLE BLOOD
     Dosage: 720 MG, DAILY
     Route: 042
     Dates: start: 20211010, end: 20211010

REACTIONS (1)
  - Infusion related hypersensitivity reaction [Recovered/Resolved]

NARRATIVE: CASE EVENT DATE: 20211012
